FAERS Safety Report 9960511 (Version 1)
Quarter: 2014Q1

REPORT INFORMATION
  Report Type: Spontaneous
  Country: US (occurrence: None)
  Receive Date: 20140304
  Receipt Date: 20140304
  Transmission Date: 20141002
  Serious: Yes (Disabling)
  Sender: FDA-Public Use
  Company Number: None

PATIENT
  Age: 62 Year
  Sex: Female
  Weight: 85.73 kg

DRUGS (1)
  1. OSMOPREP [Suspect]
     Indication: DYSPHAGIA
     Dosage: 1 DOSE EVERY 15 MINUTES TAKEN BY MOUTH
     Route: 048
     Dates: start: 20140212, end: 20140212

REACTIONS (1)
  - Gout [None]
